FAERS Safety Report 5259295-7 (Version None)
Quarter: 2007Q1

REPORT INFORMATION
  Report Type: 
  Country: None (occurrence: None)
  Receive Date: 20070308
  Receipt Date: 20070223
  Transmission Date: 20070707
  Serious: Yes (Death, Hospitalization)
  Sender: FDA-Public Use
  Company Number: GB-SHR-94/00226-USA/601

PATIENT
  Age: 45 Year
  Sex: Female

DRUGS (4)
  1. FLUDARA [Suspect]
     Dosage: 25MG/M2 X5DX3C
     Route: 042
     Dates: start: 19921124, end: 19930108
  2. PREDNISOLONE [Concomitant]
     Dates: start: 19921201
  3. DICLOFENAC SODIUM [Concomitant]
  4. CIMETIDINE HCL [Concomitant]
     Dates: start: 19920813

REACTIONS (9)
  - ARTERIAL DISORDER [None]
  - CEREBRAL INFARCTION [None]
  - EXTENSOR PLANTAR RESPONSE [None]
  - HEADACHE [None]
  - HEMIPARESIS [None]
  - HYPERREFLEXIA [None]
  - HYPOAESTHESIA [None]
  - PARALYSIS [None]
  - SENSORY DISTURBANCE [None]
